FAERS Safety Report 5874597-9 (Version None)
Quarter: 2008Q3

REPORT INFORMATION
  Report Type: 
  Country: None (occurrence: None)
  Receive Date: 20080905
  Receipt Date: 20080905
  Transmission Date: 20090109
  Serious: Yes (Hospitalization)
  Sender: FDA-Public Use
  Company Number: None

PATIENT
  Sex: Male
  Weight: 90 kg

DRUGS (2)
  1. CLOLAR [Suspect]
     Dosage: 425 MG
  2. CYTARABINE [Suspect]
     Dosage: 10600 MG

REACTIONS (12)
  - ANAEMIA [None]
  - DEHYDRATION [None]
  - ESCHERICHIA INFECTION [None]
  - FEBRILE NEUTROPENIA [None]
  - MULTI-ORGAN FAILURE [None]
  - NEUTROPENIA [None]
  - ORGANISING PNEUMONIA [None]
  - PNEUMONIA PRIMARY ATYPICAL [None]
  - SEPSIS [None]
  - SKIN DISCOLOURATION [None]
  - SKIN LESION [None]
  - THROMBOCYTOPENIA [None]
